FAERS Safety Report 4763053-7 (Version None)
Quarter: 2005Q3

REPORT INFORMATION
  Report Type: 
  Country: None (occurrence: None)
  Receive Date: 20050907
  Receipt Date: 20050815
  Transmission Date: 20060218
  Serious: Yes (Other)
  Sender: FDA-Public Use
  Company Number: US-AMGEN-US146517

PATIENT
  Age: 46 Year
  Sex: Male

DRUGS (4)
  1. ENBREL [Suspect]
     Indication: ANKYLOSING SPONDYLITIS
     Dates: start: 20050809
  2. BEXTRA [Concomitant]
  3. GLUCOSAMINE [Concomitant]
  4. CHONDROITIN [Concomitant]

REACTIONS (3)
  - CONDITION AGGRAVATED [None]
  - PSORIASIS [None]
  - SUNBURN [None]
